FAERS Safety Report 4972795-X (Version None)
Quarter: 2006Q2

REPORT INFORMATION
  Report Type: 
  Country: None (occurrence: None)
  Receive Date: 20060414
  Receipt Date: 20060404
  Transmission Date: 20061013
  Serious: Yes (Death)
  Sender: FDA-Public Use
  Company Number: JP-BRISTOL-MYERS SQUIBB COMPANY-13336888

PATIENT
  Age: 49 Year
  Sex: Male

DRUGS (2)
  1. MAXIPIME [Suspect]
     Indication: FEBRILE NEUTROPENIA
     Dates: start: 20060302, end: 20060309
  2. LENOGRASTIM [Concomitant]
     Dates: start: 20060303, end: 20060309

REACTIONS (1)
  - NON-HODGKIN'S LYMPHOMA [None]
